FAERS Safety Report 16968450 (Version 5)
Quarter: 2019Q4

REPORT INFORMATION
  Report Type: Spontaneous
  Country: GB (occurrence: GB)
  Receive Date: 20191029
  Receipt Date: 20191217
  Transmission Date: 20200122
  Serious: Yes (Other)
  Sender: FDA-Public Use
  Company Number: GB-AUROBINDO-AUR-APL-2019-066884

PATIENT
  Age: 39 Year
  Sex: Female
  Weight: 50.6 kg

DRUGS (12)
  1. CLOZARIL [Suspect]
     Active Substance: CLOZAPINE
     Dosage: 50 MILLIGRAM, ONCE A DAY
     Route: 048
     Dates: start: 20190910
  2. CLOZARIL [Suspect]
     Active Substance: CLOZAPINE
     Dosage: 50 MILLIGRAM, ONCE A DAY,PM,AM
     Route: 048
     Dates: start: 20191007
  3. QUETIAPINE. [Suspect]
     Active Substance: QUETIAPINE
     Indication: SCHIZOPHRENIA
     Dosage: 400 MILLIGRAM, ONCE A DAY, PM
     Route: 048
  4. QUETIAPINE. [Suspect]
     Active Substance: QUETIAPINE
     Dosage: 200 MILLIGRAM, ONCE A DAY, PM
     Route: 048
  5. QUETIAPINE. [Suspect]
     Active Substance: QUETIAPINE
     Dosage: UNK
     Route: 065
  6. CLOZARIL [Suspect]
     Active Substance: CLOZAPINE
     Dosage: 150 MILLIGRAM, ONCE A DAY
     Route: 048
     Dates: start: 20191007
  7. CLOZARIL [Suspect]
     Active Substance: CLOZAPINE
     Dosage: 150 MILLIGRAM, ONCE A DAY
     Route: 048
     Dates: start: 20190910
  8. CLOZARIL [Suspect]
     Active Substance: CLOZAPINE
     Indication: SCHIZOPHRENIA
     Dosage: 200 MILLIGRAM, ONCE A DAY, PM,QHS
     Route: 048
     Dates: start: 2019
  9. CLOZARIL [Suspect]
     Active Substance: CLOZAPINE
     Dosage: 100 MILLIGRAM, ONCE A DAY, (50 MG, BID)
     Route: 048
     Dates: start: 201909, end: 20190918
  10. QUETIAPINE. [Suspect]
     Active Substance: QUETIAPINE
     Dosage: UNK
     Route: 048
     Dates: start: 20190925, end: 20191006
  11. CLOZARIL [Suspect]
     Active Substance: CLOZAPINE
     Dosage: 100 MILLIGRAM, ONCE A DAY, (50B.D)
     Route: 048
     Dates: start: 20190910
  12. CLOZARIL [Suspect]
     Active Substance: CLOZAPINE
     Dosage: UNK, ONCE A DAY
     Route: 048
     Dates: start: 20190925

REACTIONS (4)
  - Antipsychotic drug level increased [Unknown]
  - Orthostatic hypotension [Recovered/Resolved]
  - Hypertension [Recovered/Resolved]
  - Heart rate increased [Recovered/Resolved]

NARRATIVE: CASE EVENT DATE: 20190911
